FAERS Safety Report 14490190 (Version 1)
Quarter: 2018Q1

REPORT INFORMATION
  Report Type: Report from Study
  Country: US (occurrence: US)
  Receive Date: 20180206
  Receipt Date: 20180206
  Transmission Date: 20180509
  Serious: No
  Sender: FDA-Public Use
  Company Number: US-AMGEN-USASL2018014247

PATIENT
  Age: 57 Year
  Sex: Female

DRUGS (3)
  1. ENBREL [Suspect]
     Active Substance: ETANERCEPT
     Dosage: 25 MG, (2 VIALS EVERY 10 TO 14 DAYS)
     Route: 065
  2. ENBREL [Suspect]
     Active Substance: ETANERCEPT
     Indication: RHEUMATOID ARTHRITIS
     Dosage: 25 MG, UNK
     Route: 065
     Dates: start: 199905, end: 199905
  3. ENBREL [Suspect]
     Active Substance: ETANERCEPT
     Dosage: 25 MG, (2 VIALS EVERY 10 TO 14 DAYS)
     Route: 065
     Dates: start: 199905

REACTIONS (6)
  - Off label use [Unknown]
  - Urinary tract infection [Recovering/Resolving]
  - Wrong technique in product usage process [Unknown]
  - Accidental exposure to product [Unknown]
  - Injection site pain [Unknown]
  - Nasopharyngitis [Unknown]

NARRATIVE: CASE EVENT DATE: 199905
